FAERS Safety Report 7983517-2 (Version None)
Quarter: 2011Q4

REPORT INFORMATION
  Report Type: 
  Country: None (occurrence: None)
  Receive Date: 20111215
  Receipt Date: 20111206
  Transmission Date: 20120403
  Serious: No
  Sender: FDA-Public Use
  Company Number: US-ELI_LILLY_AND_COMPANY-US201106004053

PATIENT
  Sex: Female

DRUGS (10)
  1. FORTEO [Suspect]
     Dosage: 20 UG, QD
     Route: 058
  2. CALCIUM [Concomitant]
  3. COLACE [Concomitant]
  4. TOBRAMYCIN [Concomitant]
  5. FORTEO [Suspect]
     Dosage: 20 UG, QD
     Route: 058
  6. CIPROFLOXACIN [Concomitant]
  7. FORTEO [Suspect]
     Indication: OSTEOPOROSIS
     Dosage: 20 UG, QD
     Route: 058
     Dates: start: 20110316
  8. LORTAB [Concomitant]
  9. ADVAIR DISKUS 100/50 [Concomitant]
  10. VITAMIN D [Concomitant]

REACTIONS (3)
  - CONSTIPATION [None]
  - OSTEOPOROTIC FRACTURE [None]
  - HEADACHE [None]
